FAERS Safety Report 5375161-0 (Version None)
Quarter: 2007Q2

REPORT INFORMATION
  Report Type: 
  Country: None (occurrence: None)
  Receive Date: 20070629
  Receipt Date: 20060825
  Transmission Date: 20071010
  Serious: No
  Sender: FDA-Public Use
  Company Number: US-ASTRAZENECA-2006UW16883

PATIENT
  Age: 48 Year
  Sex: Female

DRUGS (2)
  1. ZOLADEX [Suspect]
     Route: 058
     Dates: start: 20060314
  2. EFFEXOR [Concomitant]

REACTIONS (3)
  - DIZZINESS [None]
  - HEADACHE [None]
  - TINNITUS [None]
